FAERS Safety Report 7509694-5 (Version None)
Quarter: 2011Q2

REPORT INFORMATION
  Report Type: 
  Country: None (occurrence: None)
  Receive Date: 20110527
  Receipt Date: 20110523
  Transmission Date: 20111010
  Serious: No
  Sender: FDA-Public Use
  Company Number: US-BAYER-2011-044837

PATIENT
  Sex: Male

DRUGS (1)
  1. CIPRO [Suspect]
     Route: 048

REACTIONS (1)
  - HYPERSENSITIVITY [None]
